FAERS Safety Report 9734562 (Version 4)
Quarter: 2015Q2

REPORT INFORMATION
  Report Type: Report from Study
  Country: MX (occurrence: MX)
  Receive Date: 20131206
  Receipt Date: 20150406
  Transmission Date: 20150821
  Serious: Yes (Hospitalization)
  Sender: FDA-Public Use
  Company Number: MX-BRISTOL-MYERS SQUIBB COMPANY-19873116

PATIENT
  Age: 68 Year
  Sex: Female
  Weight: 45 kg

DRUGS (4)
  1. CETUXIMAB [Suspect]
     Active Substance: CETUXIMAB
     Indication: SQUAMOUS CELL CARCINOMA OF HEAD AND NECK
     Dosage: 400MG/M2,D1 OF CYCLE 1 ONLY  100MG/M2,D1  13OCT11 : 250 MG/M2,D1,D8,D15
     Route: 042
     Dates: start: 20111006, end: 20111006
  2. CISPLATIN. [Suspect]
     Active Substance: CISPLATIN
     Indication: SQUAMOUS CELL CARCINOMA OF HEAD AND NECK
     Dosage: 100 MG/M2, UNK
     Route: 042
     Dates: start: 20111006, end: 20111006
  3. 5-FLUOROURACIL [Suspect]
     Active Substance: FLUOROURACIL
     Indication: SQUAMOUS CELL CARCINOMA OF HEAD AND NECK
     Dosage: 4600MG/M2  RESTARTED:03NOV2011
     Route: 042
     Dates: start: 20111006, end: 20111128
  4. CARBOPLATIN. [Suspect]
     Active Substance: CARBOPLATIN
     Indication: SQUAMOUS CELL CARCINOMA OF HEAD AND NECK
     Dosage: AUC 5,D1  RESTARTED:03NOV2011
     Route: 042
     Dates: start: 20111103, end: 20111124

REACTIONS (1)
  - Thrombocytopenia [Recovered/Resolved]

NARRATIVE: CASE EVENT DATE: 20130909
